FAERS Safety Report 22243981 (Version 1)
Quarter: 2023Q2

REPORT INFORMATION
  Report Type: Report from Study
  Country: FR (occurrence: FR)
  Receive Date: 20230424
  Receipt Date: 20230424
  Transmission Date: 20230722
  Serious: Yes (Death, Life-Threatening, Other)
  Sender: FDA-Public Use
  Company Number: FR-TAKEDA-SPV1-2011-01501

PATIENT
  Age: 15 Year
  Sex: Male
  Weight: 54 kg

DRUGS (10)
  1. ELAPRASE [Suspect]
     Active Substance: IDURSULFASE
     Indication: Mucopolysaccharidosis II
     Dosage: 0.55 MILLIGRAM/KILOGRAM, 1/WEEK
     Route: 042
     Dates: start: 20070105
  2. ELAPRASE [Suspect]
     Active Substance: IDURSULFASE
     Dosage: 0.5 MILLIGRAM
     Route: 042
     Dates: start: 20111123
  3. VALPROATE SODIUM [Concomitant]
     Active Substance: VALPROATE SODIUM
     Indication: Epilepsy
     Dosage: 500 MG, 2X/DAY:BID
     Route: 048
     Dates: start: 20100520
  4. MELATONINE ISOTEC [Concomitant]
     Indication: Insomnia
     Dosage: 4 MILLIGRAM, QD
     Route: 048
     Dates: start: 20090616
  5. MELATONINE ISOTEC [Concomitant]
     Indication: Agitation
  6. ACETAMINOPHEN [Concomitant]
     Active Substance: ACETAMINOPHEN
     Indication: Premedication
     Dosage: 15 MG/KG, 1X/WEEK
     Route: 048
     Dates: start: 20070105
  7. ATARAX [Concomitant]
     Active Substance: HYDROXYZINE HYDROCHLORIDE
     Indication: Premedication
     Dosage: 5 MG/KG, 1X/WEEK
     Route: 048
     Dates: start: 20070105
  8. PREDNISOLONE [Concomitant]
     Active Substance: PREDNISOLONE
     Indication: Respiratory disorder
     Dosage: 25 MG, 2X/DAY:BID
     Route: 048
     Dates: start: 20111110
  9. ALBUTEROL [Concomitant]
     Active Substance: ALBUTEROL
     Indication: Respiratory disorder
     Dosage: UNK
     Route: 065
     Dates: start: 20100622
  10. KETEK [Concomitant]
     Active Substance: TELITHROMYCIN
     Dosage: UNK
     Route: 048
     Dates: start: 20110201, end: 20110208

REACTIONS (1)
  - Epilepsy [Fatal]

NARRATIVE: CASE EVENT DATE: 20111209
